FAERS Safety Report 24188140 (Version 1)
Quarter: 2024Q3

REPORT INFORMATION
  Report Type: Report from Study
  Country: US (occurrence: None)
  Receive Date: 20240808
  Receipt Date: 20240808
  Transmission Date: 20241017
  Serious: Yes (Other)
  Sender: ASTRAZENECA
  Company Number: 2022A230655

PATIENT
  Sex: Female

DRUGS (1)
  1. TAGRISSO [Suspect]
     Active Substance: OSIMERTINIB
     Indication: Lung carcinoma cell type unspecified stage 0
     Route: 048
     Dates: start: 20220325

REACTIONS (1)
  - Toxicity to various agents [Unknown]
